FAERS Safety Report 15676272 (Version 1)
Quarter: 2018Q4

REPORT INFORMATION
  Report Type: Report from Study
  Country: DO (occurrence: DO)
  Receive Date: 20181130
  Receipt Date: 20181130
  Transmission Date: 20190205
  Serious: Yes (Hospitalization)
  Sender: FDA-Public Use
  Company Number: PHHY2018DO018764

PATIENT
  Age: 52 Year
  Sex: Female
  Weight: 56.69 kg

DRUGS (4)
  1. GILENYA [Suspect]
     Active Substance: FINGOLIMOD HYDROCHLORIDE
     Indication: MULTIPLE SCLEROSIS
     Dosage: UNK, QD
     Route: 048
  2. VITAMIN D [Concomitant]
     Active Substance: CHOLECALCIFEROL
     Indication: PRODUCT USED FOR UNKNOWN INDICATION
     Dosage: 1 DF, QD
     Route: 065
  3. VITAMIN C [Concomitant]
     Active Substance: ASCORBIC ACID
     Indication: PRODUCT USED FOR UNKNOWN INDICATION
     Dosage: 1 DF, QD
     Route: 065
  4. VITAMIN E [Concomitant]
     Active Substance: .ALPHA.-TOCOPHEROL
     Indication: PRODUCT USED FOR UNKNOWN INDICATION
     Dosage: 1 DF, QD
     Route: 065

REACTIONS (19)
  - Gait disturbance [Unknown]
  - Pyrexia [Recovered/Resolved]
  - Hypoacusis [Unknown]
  - Head discomfort [Unknown]
  - Infection [Recovering/Resolving]
  - Platelet count decreased [Unknown]
  - Photopsia [Recovering/Resolving]
  - Stress [Unknown]
  - Eye pain [Unknown]
  - Hypotension [Recovering/Resolving]
  - White blood cell count decreased [Recovering/Resolving]
  - Chest pain [Recovering/Resolving]
  - Dysuria [Unknown]
  - Headache [Unknown]
  - Depressed mood [Unknown]
  - Pain in extremity [Unknown]
  - Limb discomfort [Unknown]
  - Swelling [Unknown]
  - Memory impairment [Unknown]

NARRATIVE: CASE EVENT DATE: 20180521
